FAERS Safety Report 4314950-8 (Version None)
Quarter: 2004Q1

REPORT INFORMATION
  Report Type: 
  Country: None (occurrence: None)
  Receive Date: 20040310
  Receipt Date: 20040310
  Transmission Date: 20041129
  Serious: Yes (Life-Threatening, Hospitalization)
  Sender: FDA-Public Use
  Company Number: None

PATIENT
  Age: 16 Year
  Sex: Male
  Weight: 79.3795 kg

DRUGS (3)
  1. DEPAKOTE [Suspect]
     Indication: ASPERGER'S DISORDER
     Dosage: 500 MG TID ORAL
     Route: 048
     Dates: start: 20030704, end: 20030822
  2. KLONOPIN [Concomitant]
  3. DEPAKOTE ER [Concomitant]

REACTIONS (5)
  - ATELECTASIS [None]
  - COLITIS [None]
  - PANCREATIC PSEUDOCYST [None]
  - PANCREATITIS [None]
  - PLEURAL EFFUSION [None]
